FAERS Safety Report 24901443 (Version 2)
Quarter: 2025Q3

REPORT INFORMATION
  Report Type: Report from Study
  Country: EG (occurrence: EG)
  Receive Date: 20250129
  Receipt Date: 20250809
  Transmission Date: 20251021
  Serious: Yes (Death, Other)
  Sender: ALEXION PHARMACEUTICALS
  Company Number: EG-AstraZeneca-CH-00793807A

PATIENT
  Age: 62 Year
  Sex: Male

DRUGS (1)
  1. ACALABRUTINIB [Suspect]
     Active Substance: ACALABRUTINIB
     Indication: Chronic lymphocytic leukaemia
     Dosage: 100 MILLIGRAM, Q12H
     Dates: start: 20241229

REACTIONS (1)
  - Condition aggravated [Fatal]

NARRATIVE: CASE EVENT DATE: 20250113
